FAERS Safety Report 22170796 (Version 2)
Quarter: 2023Q2

REPORT INFORMATION
  Report Type: Other
  Country: US (occurrence: None)
  Receive Date: 20230404
  Receipt Date: 20230427
  Transmission Date: 20230722
  Serious: Yes (Hospitalization)
  Sender: FDA-Public Use
  Company Number: US-ROCHE-3292442

PATIENT
  Age: 45 Year
  Sex: Female
  Weight: 73.548 kg

DRUGS (1)
  1. ALECENSA [Suspect]
     Active Substance: ALECTINIB HYDROCHLORIDE
     Indication: Bronchial carcinoma
     Dosage: (TAKE 4 ORAL TWICE A DAILY) DATE OF TREATMENT: 18/MAR/2020
     Route: 048
     Dates: start: 202002, end: 202212

REACTIONS (8)
  - Liver disorder [Recovered/Resolved]
  - Hepatomegaly [Unknown]
  - Hypertransaminasaemia [Unknown]
  - Erythema [Unknown]
  - Pruritus [Unknown]
  - Skin induration [Unknown]
  - Skin disorder [Not Recovered/Not Resolved]
  - Off label use [Unknown]

NARRATIVE: CASE EVENT DATE: 20220101
